FAERS Safety Report 8212487-7 (Version None)
Quarter: 2012Q1

REPORT INFORMATION
  Report Type: 
  Country: None (occurrence: None)
  Receive Date: 20120315
  Receipt Date: 20120308
  Transmission Date: 20120608
  Serious: Yes (Disabling)
  Sender: FDA-Public Use
  Company Number: US-GLAXOSMITHKLINE-A0969143A

PATIENT
  Age: 10 Year
  Sex: Female

DRUGS (2)
  1. ALBUTEROL [Concomitant]
  2. VERAMYST [Suspect]
     Indication: MULTIPLE ALLERGIES
     Dosage: 1SPR PER DAY
     Route: 045
     Dates: start: 20120223

REACTIONS (1)
  - VISION BLURRED [None]
